FAERS Safety Report 21045444 (Version 1)
Quarter: 2022Q3

REPORT INFORMATION
  Report Type: Spontaneous
  Country: PH (occurrence: None)
  Receive Date: 20220706
  Receipt Date: 20220706
  Transmission Date: 20221026
  Serious: Yes (Hospitalization)
  Sender: FDA-Public Use
  Company Number: 2022A240650

PATIENT
  Age: 18217 Day
  Sex: Female

DRUGS (1)
  1. LYNPARZA [Suspect]
     Active Substance: OLAPARIB
     Indication: Ovarian cancer
     Route: 048
     Dates: start: 20220523, end: 20220617

REACTIONS (1)
  - Vaginal discharge [Recovering/Resolving]

NARRATIVE: CASE EVENT DATE: 20220605
